FAERS Safety Report 11306485 (Version 2)
Quarter: 2015Q3

REPORT INFORMATION
  Report Type: Spontaneous
  Country: US (occurrence: US)
  Receive Date: 20150723
  Receipt Date: 20150730
  Transmission Date: 20151125
  Serious: Yes (Death, Other)
  Sender: FDA-Public Use
  Company Number: US-TAKEDA-2015TUS009497

PATIENT
  Sex: Male

DRUGS (4)
  1. ENTYVIO [Suspect]
     Active Substance: VEDOLIZUMAB
     Indication: COLITIS ULCERATIVE
     Dosage: 300 MG, Q8WEEKS
     Route: 042
     Dates: start: 201412, end: 20150529
  2. PREDNISONE. [Concomitant]
     Active Substance: PREDNISONE
     Indication: HAEMOLYTIC ANAEMIA
     Route: 048
  3. VITAMIN D [Concomitant]
     Active Substance: CHOLECALCIFEROL
  4. IVIG [Concomitant]
     Active Substance: HUMAN IMMUNOGLOBULIN G
     Indication: HAEMOLYTIC ANAEMIA
     Route: 042

REACTIONS (1)
  - Pulmonary embolism [Fatal]
